FAERS Safety Report 18303293 (Version 8)
Quarter: 2025Q1

REPORT INFORMATION
  Report Type: Report from Study
  Country: BE (occurrence: BE)
  Receive Date: 20200923
  Receipt Date: 20250317
  Transmission Date: 20250409
  Serious: Yes (Other)
  Sender: VERTEX
  Company Number: BE-VERTEX PHARMACEUTICALS-2020-017702

PATIENT
  Age: 58 Year
  Sex: Female
  Weight: 47 kg

DRUGS (18)
  1. ELEXACAFTOR\IVACAFTOR\TEZACAFTOR [Suspect]
     Active Substance: ELEXACAFTOR\IVACAFTOR\TEZACAFTOR
     Indication: Cystic fibrosis
     Dosage: 100MG ELEXACAFTOR/ 50MG TEZACAFTOR/ 75MG IVACAFTOR, QD
     Route: 048
     Dates: start: 20200731
  2. ELEXACAFTOR\IVACAFTOR\TEZACAFTOR [Suspect]
     Active Substance: ELEXACAFTOR\IVACAFTOR\TEZACAFTOR
     Route: 048
     Dates: start: 20200831, end: 202101
  3. ELEXACAFTOR\IVACAFTOR\TEZACAFTOR [Suspect]
     Active Substance: ELEXACAFTOR\IVACAFTOR\TEZACAFTOR
     Route: 048
     Dates: start: 20210104
  4. ELEXACAFTOR\IVACAFTOR\TEZACAFTOR [Suspect]
     Active Substance: ELEXACAFTOR\IVACAFTOR\TEZACAFTOR
     Route: 048
  5. KALYDECO [Suspect]
     Active Substance: IVACAFTOR
     Indication: Cystic fibrosis
     Dosage: 150MG IVACAFTOR, QD
     Route: 048
     Dates: start: 20200731
  6. KALYDECO [Suspect]
     Active Substance: IVACAFTOR
     Route: 048
     Dates: start: 20200831
  7. KALYDECO [Suspect]
     Active Substance: IVACAFTOR
     Route: 048
     Dates: start: 20210104
  8. AZITHROMYCIN [Suspect]
     Active Substance: AZITHROMYCIN
     Indication: Product used for unknown indication
     Route: 065
     Dates: end: 2020
  9. PULMOZYME [Concomitant]
     Active Substance: DORNASE ALFA
     Indication: Cystic fibrosis lung
     Dosage: 2.5 MILLILITER, QD
     Dates: start: 20040325
  10. FENOTEROL HYDROBROMIDE [Concomitant]
     Active Substance: FENOTEROL HYDROBROMIDE
     Indication: Bronchial hyperreactivity
     Dates: start: 20170517
  11. PANTOMED [Concomitant]
     Indication: Reflux gastritis
     Dosage: 40 MG, QD
     Route: 048
     Dates: start: 20110908
  12. CREON [Concomitant]
     Active Substance: PANCRELIPASE AMYLASE\PANCRELIPASE LIPASE\PANCRELIPASE PROTEASE
     Indication: Pancreatic failure
     Route: 048
     Dates: start: 1999
  13. CHOLECALCIFEROL [Concomitant]
     Active Substance: CHOLECALCIFEROL
     Indication: Pancreatic failure
     Route: 048
     Dates: start: 20190523
  14. NOVORAPID [Concomitant]
     Active Substance: INSULIN ASPART
     Indication: Cystic fibrosis related diabetes
     Dosage: UNK, TID
     Route: 058
     Dates: start: 201709
  15. ASPIRIN [Concomitant]
     Active Substance: ASPIRIN
     Indication: Thrombosis prophylaxis
     Dosage: 80 MG, QD
     Route: 048
     Dates: start: 20190207
  16. ASPIRIN [Concomitant]
     Active Substance: ASPIRIN
  17. FENOTEROL [Concomitant]
     Active Substance: FENOTEROL
  18. HYDROBROMIDE DEXTROMETHORPHAN [Concomitant]

REACTIONS (1)
  - Drug-induced liver injury [Recovered/Resolved]

NARRATIVE: CASE EVENT DATE: 20200820
